FAERS Safety Report 8555190-6 (Version None)
Quarter: 2012Q3

REPORT INFORMATION
  Report Type: 
  Country: None (occurrence: None)
  Receive Date: 20120731
  Receipt Date: 20120723
  Transmission Date: 20120928
  Serious: Yes (Other)
  Sender: FDA-Public Use
  Company Number: US-009507513-1207USA011298

PATIENT

DRUGS (5)
  1. EXFORGE HCT [Suspect]
     Dosage: 5 MG, UNK
     Route: 048
  2. EXFORGE HCT [Suspect]
     Dosage: 12.5 MG, UNK
     Route: 048
  3. METOPROLOL TARTRATE [Suspect]
     Dosage: 200 MG, QD
     Route: 048
  4. ZOCOR [Suspect]
     Dosage: 20 MG, QD
     Route: 048
  5. EXFORGE HCT [Suspect]
     Dosage: 160 MG, UNK
     Route: 048

REACTIONS (2)
  - DYSPNOEA [None]
  - ANGINA PECTORIS [None]
